FAERS Safety Report 10217733 (Version 2)
Quarter: 2014Q2

REPORT INFORMATION
  Report Type: Spontaneous
  Country: US (occurrence: US)
  Receive Date: 20140604
  Receipt Date: 20140617
  Transmission Date: 20141212
  Serious: Yes (Hospitalization, Other)
  Sender: FDA-Public Use
  Company Number: US-GILEAD-2014-0104306

PATIENT
  Sex: Female

DRUGS (3)
  1. LETAIRIS [Suspect]
     Indication: PRODUCT USED FOR UNKNOWN INDICATION
     Dosage: 10 MG, QD
     Route: 065
     Dates: start: 20140327
  2. VELETRI [Concomitant]
  3. REVATIO [Concomitant]

REACTIONS (4)
  - Gastrointestinal haemorrhage [Unknown]
  - Dysentery [Unknown]
  - Gastrointestinal haemorrhage [Unknown]
  - Abdominal distension [Unknown]
